FAERS Safety Report 9523253 (Version 2)
Quarter: 2013Q3

REPORT INFORMATION
  Report Type: Report from Study
  Country: AU (occurrence: AU)
  Receive Date: 20130913
  Receipt Date: 20130926
  Transmission Date: 20140515
  Serious: Yes (Other)
  Sender: FDA-Public Use
  Company Number: PHHY2013AU101234

PATIENT
  Age: 58 Year
  Sex: Female

DRUGS (5)
  1. ACLASTA [Suspect]
     Dosage: 5MG/100ML
     Route: 042
     Dates: start: 20100920
  2. ACLASTA [Suspect]
     Dosage: 5MG/100ML
     Route: 042
     Dates: start: 20110902
  3. ACLASTA [Suspect]
     Dosage: 5MG/100ML
     Route: 042
     Dates: start: 20120813
  4. PANADEINE FORTE [Concomitant]
     Indication: PAIN
     Dosage: 6/24
     Dates: start: 20121210
  5. MOBIC [Concomitant]
     Indication: MYALGIA
     Dosage: 15 MG, QD
     Route: 048
     Dates: start: 20111105

REACTIONS (5)
  - Fall [Recovered/Resolved]
  - Upper limb fracture [Recovered/Resolved with Sequelae]
  - Contusion [Recovered/Resolved with Sequelae]
  - Nipple disorder [Unknown]
  - Drug ineffective [Unknown]
